FAERS Safety Report 10854962 (Version 1)
Quarter: 2015Q1

REPORT INFORMATION
  Report Type: Spontaneous
  Country: CN (occurrence: None)
  Receive Date: 20150218
  Receipt Date: 20150218
  Transmission Date: 20150721
  Serious: Yes (Death, Other)
  Sender: FDA-Public Use
  Company Number: CN-ALKEM-000860

PATIENT
  Age: 45 Year
  Sex: Female
  Weight: 70 kg

DRUGS (4)
  1. MYCOPHENOLATE MOFETIL (MYCOPHENOLATE MOFETIL) [Suspect]
     Active Substance: MYCOPHENOLATE MOFETIL
     Indication: GRAFT VERSUS HOST DISEASE
  2. CYCLOPHOSPHAMIDE (CYCLOPHOSPHAMIDE) [Suspect]
     Active Substance: CYCLOPHOSPHAMIDE
     Indication: STEM CELL TRANSPLANT
  3. CYCLOSPORINE. [Suspect]
     Active Substance: CYCLOSPORINE
     Indication: GRAFT VERSUS HOST DISEASE
  4. CYTARABINE (CYTARABINE) [Suspect]
     Active Substance: CYTARABINE
     Indication: STEM CELL TRANSPLANT

REACTIONS (4)
  - Lung infection [None]
  - Post procedural complication [None]
  - Cystitis haemorrhagic [None]
  - Stem cell transplant [None]
